FAERS Safety Report 9693237 (Version 1)
Quarter: 2013Q4

REPORT INFORMATION
  Report Type: Spontaneous
  Country: CA (occurrence: None)
  Receive Date: 20131114
  Receipt Date: 20131114
  Transmission Date: 20140711
  Serious: Yes (Hospitalization)
  Sender: FDA-Public Use
  Company Number: 2013110022

PATIENT
  Age: 60 Year
  Sex: Male

DRUGS (7)
  1. NABILONE [Suspect]
     Indication: AGGRESSION
     Dosage: 0.5 MG (0.5 MG, 1 IN 1 D)
     Dates: start: 201001, end: 2010
  2. NABILONE [Suspect]
     Indication: AGITATION
     Dosage: 0.5 MG (0.5 MG, 1 IN 1 D)
     Dates: start: 201001, end: 2010
  3. MEMANTIKNE (MEMANTINE) [Concomitant]
  4. CITALOPRAM (CITALOPRAM) [Concomitant]
  5. QUETIAPINE (QUETIAPINE) [Concomitant]
  6. VALPROIC ACID (VALPROIC ACID) [Concomitant]
  7. ZOPICLONE (ZOPICLONE) [Concomitant]

REACTIONS (8)
  - Off label use [None]
  - Aggression [None]
  - Aggression [None]
  - Affect lability [None]
  - Speech disorder [None]
  - Restlessness [None]
  - Therapeutic product ineffective [None]
  - Condition aggravated [None]
